FAERS Safety Report 20617451 (Version 1)
Quarter: 2022Q1

REPORT INFORMATION
  Report Type: Spontaneous
  Country: US (occurrence: US)
  Receive Date: 20220321
  Receipt Date: 20220321
  Transmission Date: 20220423
  Serious: No
  Sender: FDA-Public Use
  Company Number: US-BIOGEN-2021BI00982766

PATIENT
  Sex: Female

DRUGS (3)
  1. TECFIDERA [Suspect]
     Active Substance: DIMETHYL FUMARATE
     Indication: Multiple sclerosis
     Route: 048
     Dates: start: 20210210, end: 20210212
  2. TECFIDERA [Suspect]
     Active Substance: DIMETHYL FUMARATE
     Route: 048
     Dates: start: 20140721
  3. TECFIDERA [Suspect]
     Active Substance: DIMETHYL FUMARATE
     Route: 048
     Dates: start: 20210208

REACTIONS (7)
  - Asthenia [Unknown]
  - Multiple sclerosis [Unknown]
  - Rash [Not Recovered/Not Resolved]
  - Diarrhoea [Unknown]
  - Urticaria [Unknown]
  - Vomiting [Recovered/Resolved]
  - Nausea [Recovered/Resolved]
